FAERS Safety Report 5733894-8 (Version None)
Quarter: 2008Q2

REPORT INFORMATION
  Report Type: 
  Country: None (occurrence: None)
  Receive Date: 20080509
  Receipt Date: 20080428
  Transmission Date: 20081010
  Serious: Yes (Other)
  Sender: FDA-Public Use
  Company Number: US-PFIZER INC-2008037505

PATIENT
  Age: 8 Year
  Sex: Male
  Weight: 24.5 kg

DRUGS (3)
  1. SERTRALINE [Suspect]
     Indication: ASPERGER'S DISORDER
  2. SERTRALINE [Suspect]
     Indication: ANXIETY
  3. ALL OTHER THERAPEUTIC PRODUCTS [Concomitant]

REACTIONS (2)
  - DISINHIBITION [None]
  - DRUG INTOLERANCE [None]
